FAERS Safety Report 8532028-4 (Version None)
Quarter: 2012Q3

REPORT INFORMATION
  Report Type: 
  Country: None (occurrence: None)
  Receive Date: 20120723
  Receipt Date: 20120716
  Transmission Date: 20120928
  Serious: Yes (Hospitalization)
  Sender: FDA-Public Use
  Company Number: US-GLAXOSMITHKLINE-A0790243A

PATIENT
  Age: 59 Year
  Sex: Female
  Weight: 99.1 kg

DRUGS (9)
  1. PROVENTIL [Concomitant]
  2. PROTONIX [Concomitant]
  3. PREMARIN [Concomitant]
  4. ALLEGRA [Concomitant]
  5. ZOLOFT [Concomitant]
  6. AVANDIA [Suspect]
     Indication: DIABETES MELLITUS
     Dosage: 8MG PER DAY
     Route: 048
     Dates: start: 20030614, end: 20071001
  7. PLAVIX [Concomitant]
  8. DIOVAN HCT [Concomitant]
  9. SINGULAIR [Concomitant]

REACTIONS (3)
  - PULMONARY OEDEMA [None]
  - CARDIAC FAILURE CONGESTIVE [None]
  - ANGINA UNSTABLE [None]
